FAERS Safety Report 19303784 (Version 3)
Quarter: 2021Q3

REPORT INFORMATION
  Report Type: Report from Study
  Country: JP (occurrence: JP)
  Receive Date: 20210525
  Receipt Date: 20210907
  Transmission Date: 20211014
  Serious: Yes (Death, Other)
  Sender: FDA-Public Use
  Company Number: JP-ROCHE-2832699

PATIENT
  Age: 75 Year
  Sex: Male
  Weight: 82.7 kg

DRUGS (22)
  1. MEDROL [Suspect]
     Active Substance: METHYLPREDNISOLONE
     Dosage: 24 MILLIGRAM, BID
     Route: 048
     Dates: start: 20210603, end: 20210609
  2. PREDONINE [Suspect]
     Active Substance: PREDNISOLONE
     Indication: INTERSTITIAL LUNG DISEASE
     Dosage: 25 MILLIGRAM, QD
     Route: 048
     Dates: start: 20210610, end: 20210617
  3. AMINOLEBAN EN [Concomitant]
     Active Substance: UNSPECIFIED INGREDIENT
     Indication: HEPATIC FAILURE
     Dosage: UNK, TID
     Route: 048
     Dates: start: 20201202, end: 20210703
  4. FUROSEMIDE. [Concomitant]
     Active Substance: FUROSEMIDE
     Indication: HYPERTENSION
     Dosage: UNK UNK, QD
     Route: 048
     Dates: start: 20210107, end: 20210703
  5. ATEZOLIZUMAB. [Suspect]
     Active Substance: ATEZOLIZUMAB
     Route: 041
     Dates: start: 20210201, end: 20210405
  6. BEVACIZUMAB. [Suspect]
     Active Substance: BEVACIZUMAB
     Route: 041
     Dates: start: 20210201, end: 20210405
  7. TAKECAB [Concomitant]
     Active Substance: VONOPRAZAN FUMARATE
     Dosage: UNK, QD
     Route: 048
     Dates: start: 20190528, end: 20210703
  8. SHAKUYAKUKANZOTO [Concomitant]
     Active Substance: HERBALS
     Indication: MUSCLE SPASMS
     Dosage: UNK, PRN
     Route: 048
     Dates: start: 20190426, end: 20210703
  9. HUSCODE [Concomitant]
     Active Substance: CHLORPHENIRAMINE MALEATE\DIHYDROCODEINE PHOSPHATE\METHYLEPHEDRINE HYDROCHLORIDE, DL-
     Indication: COUGH
     Dosage: UNK, TID
     Route: 048
     Dates: start: 20210416, end: 20210703
  10. MEDROL [Suspect]
     Active Substance: METHYLPREDNISOLONE
     Indication: INTERSTITIAL LUNG DISEASE
     Dosage: 40 MILLIGRAM, BID
     Route: 048
     Dates: start: 20210521, end: 20210602
  11. AMBROXOL HYDROCHLORIDE [Concomitant]
     Active Substance: AMBROXOL HYDROCHLORIDE
     Indication: COUGH
     Dosage: UNK UNK, QD
     Route: 048
     Dates: start: 20201102, end: 20210703
  12. VALSARTAN. [Concomitant]
     Active Substance: VALSARTAN
     Indication: HYPERTENSION
     Dosage: UNK UNK, QD
     Route: 048
     Dates: start: 20210402, end: 20210703
  13. ELIQUIS [Concomitant]
     Active Substance: APIXABAN
     Indication: DEEP VEIN THROMBOSIS
     Dosage: 20 MILLIGRAM, BID
     Route: 048
     Dates: start: 20210625, end: 20210703
  14. PREDNISOLONE. [Suspect]
     Active Substance: PREDNISOLONE
     Indication: INTERSTITIAL LUNG DISEASE
     Dosage: 60 MILLIGRAM, BID
     Route: 048
     Dates: start: 20210503, end: 20210516
  15. PREDONINE [Suspect]
     Active Substance: PREDNISOLONE
     Dosage: 20 MILLIGRAM, QD
     Route: 048
     Dates: start: 20210618, end: 20210703
  16. PREDNISOLONE. [Suspect]
     Active Substance: PREDNISOLONE
     Dosage: 50 MILLIGRAM, BID
     Route: 048
     Dates: start: 20210517, end: 20210520
  17. BEVACIZUMAB. [Suspect]
     Active Substance: BEVACIZUMAB
     Indication: HEPATOCELLULAR CARCINOMA
     Route: 041
     Dates: start: 20210106, end: 20210106
  18. SOLU?MEDROL [Suspect]
     Active Substance: METHYLPREDNISOLONE SODIUM SUCCINATE
     Indication: INTERSTITIAL LUNG DISEASE
     Dosage: 1000 MILLIGRAM
     Route: 065
     Dates: start: 20210430, end: 20210502
  19. ATEZOLIZUMAB. [Suspect]
     Active Substance: ATEZOLIZUMAB
     Indication: HEPATOCELLULAR CARCINOMA
     Route: 041
     Dates: start: 20210106, end: 20210106
  20. AMINOVACT [Concomitant]
     Active Substance: ISOLEUCINE\LEUCINE\VALINE
     Indication: HEPATIC FAILURE
     Dosage: UNK
     Route: 048
     Dates: start: 20190426, end: 20210703
  21. URSODEOXYCHOLIC ACID [Concomitant]
     Active Substance: URSODIOL
     Indication: LIVER DISORDER
     Dosage: 200 MILLIGRAM, TID
     Route: 048
     Dates: start: 20190628, end: 20210703
  22. THYRADIN S [Concomitant]
     Active Substance: LEVOTHYROXINE SODIUM
     Indication: HYPOTHYROIDISM
     Dosage: UNK UNK, QD
     Route: 048
     Dates: start: 20210222, end: 20210703

REACTIONS (12)
  - Ascites [Unknown]
  - Hepatic function abnormal [Unknown]
  - Hypoxia [Unknown]
  - Cough [Unknown]
  - Deep vein thrombosis [Fatal]
  - Epistaxis [Recovered/Resolved]
  - Cellulitis [Fatal]
  - Pulmonary embolism [Unknown]
  - Hypertension [Recovered/Resolved]
  - Interstitial lung disease [Recovering/Resolving]
  - Hypothyroidism [Recovered/Resolved]
  - Urinary tract infection [Unknown]

NARRATIVE: CASE EVENT DATE: 20210222
